FAERS Safety Report 13554031 (Version 1)
Quarter: 2017Q2

REPORT INFORMATION
  Report Type: Spontaneous
  Country: ES (occurrence: ES)
  Receive Date: 20170517
  Receipt Date: 20170517
  Transmission Date: 20170830
  Serious: Yes (Other)
  Sender: FDA-Public Use
  Company Number: ES-TEVA-767313ISR

PATIENT
  Age: 3 Year
  Sex: Male

DRUGS (6)
  1. VINCRISTINA TEVA 1 MG/ML EFG INJECTION SOLUTION [Suspect]
     Active Substance: VINCRISTINE SULFATE
     Indication: ACUTE LYMPHOCYTIC LEUKAEMIA
     Dosage: 1 MG/ML DAILY; VINCRISTINA TEVA 1 MG/ML SOLUCI?N INYECTABLE EFG
     Route: 065
     Dates: start: 20170206, end: 20170302
  2. ZOVIRAX 400MG / 5ML ORAL SUSPENSION [Concomitant]
     Indication: OPPORTUNISTIC INFECTION PROPHYLAXIS
     Dosage: ZOVIRAX 400MG/5ML SUSPENSI?N ORAL
     Route: 048
     Dates: start: 20170201
  3. DAUNOBLASTINA 20 MG POWDER AND SOLVENT FOR INJECTION SOLUTION [Interacting]
     Active Substance: DAUNORUBICIN HYDROCHLORIDE
     Indication: ACUTE LYMPHOCYTIC LEUKAEMIA
     Dosage: 20 MILLIGRAM DAILY; DAUNOBLASTINA 20 MG POLVO Y DISOLVENTE PARA SOLUCION INYECTABLE
     Dates: start: 20170206, end: 20170302
  4. METILPREDNISONEA NORMON 40 MG POWDER AND SOLVENT FOR INJECTABLE SOLUTI [Interacting]
     Active Substance: METHYLPREDNISOLONE
     Indication: ACUTE LYMPHOCYTIC LEUKAEMIA
     Dosage: METILPREDNISONA NORMON 40 MG POLVO Y DISOLVENTE PARA SOLUCI?N INYECTABLE EFG
     Dates: start: 20170130, end: 20170305
  5. SEPTRIN PEDIATRIC 8MG / 40MG / ML ORAL SUSPENSION [Concomitant]
     Indication: OPPORTUNISTIC INFECTION PROPHYLAXIS
     Dosage: SEPTRIN PEDIATRICO 8MG/40MG/ML SUSPENSION ORAL
     Route: 048
     Dates: start: 20170201
  6. CLEXANE 20 MG (2000UI) INJECTABLE SOLUTION IN PRE-FILLED SYRINGE [Concomitant]
     Indication: THROMBOSIS PROPHYLAXIS
     Dosage: 16.3 MILLIGRAM DAILY; CLEXANE 20 MG (2000UI) SOLUCION INYECTABLE EN JERINGA PRECARGADA
     Dates: start: 20170207, end: 20170305

REACTIONS (2)
  - Drug interaction [Unknown]
  - Gastroenteritis rotavirus [Recovered/Resolved]

NARRATIVE: CASE EVENT DATE: 20170210
